FAERS Safety Report 12947449 (Version 1)
Quarter: 2016Q4

REPORT INFORMATION
  Report Type: Spontaneous
  Country: US (occurrence: US)
  Receive Date: 20161116
  Receipt Date: 20161116
  Transmission Date: 20170207
  Serious: Yes (Other)
  Sender: FDA-Public Use
  Company Number: US-PFIZER INC-3166354

PATIENT
  Age: 58 Year
  Sex: Female
  Weight: 97.5 kg

DRUGS (22)
  1. CYTOXAN [Suspect]
     Active Substance: CYCLOPHOSPHAMIDE
     Dosage: 110 MG, CYCLIC [ON DAYS 6 AND 5] [[14.5 MG/KG,2 IN 1 CYCLICAL]]
  2. DAPSONE. [Concomitant]
     Active Substance: DAPSONE
     Dosage: 100 MG, DAILY
     Route: 048
  3. VFEND [Concomitant]
     Active Substance: VORICONAZOLE
     Dosage: 400 MG, DAILY
     Route: 048
  4. HYDRODIURIL [Concomitant]
     Active Substance: HYDROCHLOROTHIAZIDE
     Indication: PERIPHERAL SWELLING
     Dosage: 25 MG, DAILY
     Route: 048
  5. ATG RABBIT [Suspect]
     Active Substance: LAPINE T-LYMPHOCYTE IMMUNE GLOBULIN
     Dosage: UNK
  6. CYTOXAN [Suspect]
     Active Substance: CYCLOPHOSPHAMIDE
     Dosage: 3820 MG, CYCLIC [ON DAYS +3 AND +4, POST-TRANSPLANT [50 MG/KG,2 IN 1 CYCLICAL]]
  7. MESNA. [Suspect]
     Active Substance: MESNA
     Dosage: UNK UNK, CYCLIC [ON DAYS +3 AND +4, POST TRANSPLANT [2 IN 1 CYCLICAL]]
  8. VFEND [Concomitant]
     Active Substance: VORICONAZOLE
     Dosage: 600 MG, DAILY
     Route: 048
  9. PROMACTA [Suspect]
     Active Substance: ELTROMBOPAG OLAMINE
     Dosage: UNK [[1 IN 1 D]]
     Dates: start: 20150529, end: 20150602
  10. ZOVIRAX [Concomitant]
     Active Substance: ACYCLOVIR
     Dosage: 40 MG, UNK
     Route: 048
  11. ANTI-THYMOCYTE GLOBULIN (RABBIT) NOS [Suspect]
     Active Substance: LAPINE T-LYMPHOCYTE IMMUNE GLOBULIN
     Indication: BONE MARROW CONDITIONING REGIMEN
     Dosage: 50 MG, CYCLIC [ON DAYS 9 THROUGH 7] [[0.5 MG/KG,3 IN 1 CYCLICAL]]
  12. SANDIMMUNE [Suspect]
     Active Substance: CYCLOSPORINE
     Dosage: 100 MG, DAILY
     Route: 048
  13. NORVASC [Concomitant]
     Active Substance: AMLODIPINE BESYLATE
     Dosage: 5 MG, DAILY
     Route: 048
  14. MICRO-K [Concomitant]
     Active Substance: POTASSIUM CHLORIDE
     Dosage: 20 MEQ, DAILY
     Route: 048
  15. CYTOXAN [Suspect]
     Active Substance: CYCLOPHOSPHAMIDE
     Dosage: 940 MG, CYCLIC [DAY5 THROUGH DAY2] [[500 MG/M2,4 IN 1 CYCLICAL]]
  16. PROMACTA [Suspect]
     Active Substance: ELTROMBOPAG OLAMINE
     Dosage: UNK,(1 IN D)
  17. CHOLECALCIFEROL [Concomitant]
     Active Substance: CHOLECALCIFEROL
     Dosage: 1000 IU, DAILY
     Route: 048
  18. COMPAZINE [Concomitant]
     Active Substance: PROCHLORPERAZINE MALEATE
     Indication: NAUSEA
     Dosage: 10 MG, AS NEEDED [EVERY 6 HOURS [10 MG,1 IN 1 AS REQUIRED]]
     Route: 048
  19. FLUDARABINE PHOSPHATE. [Suspect]
     Active Substance: FLUDARABINE PHOSPHATE
     Dosage: 55 MG, CYCLIC,  30 MG/M2, DAY 6 THROUGH DAY 2, FREQ: CYCLICAL
  20. CAMPATH [Suspect]
     Active Substance: ALEMTUZUMAB
     Indication: BONE MARROW CONDITIONING REGIMEN
     Dosage: 20 MG, DAY 4 THROUGH DAY 1, FREQ: CYCLICAL
  21. MAGNESIUM OXIDE. [Concomitant]
     Active Substance: MAGNESIUM OXIDE
     Dosage: 800 MG, DAILY
     Route: 048
  22. PROTONIX [Concomitant]
     Active Substance: PANTOPRAZOLE SODIUM
     Dosage: 40 MG, DAILY
     Route: 048

REACTIONS (8)
  - Polyomavirus test positive [Not Recovered/Not Resolved]
  - Cystitis viral [Not Recovered/Not Resolved]
  - Neuropathy peripheral [Not Recovered/Not Resolved]
  - Discomfort [Unknown]
  - Sinus congestion [Unknown]
  - Skin hyperpigmentation [Unknown]
  - Rhinorrhoea [Not Recovered/Not Resolved]
  - Transplant failure [Unknown]

NARRATIVE: CASE EVENT DATE: 20150826
